FAERS Safety Report 4544755-4 (Version None)
Quarter: 2004Q4

REPORT INFORMATION
  Report Type: 
  Country: None (occurrence: None)
  Receive Date: 20041230
  Receipt Date: 20041220
  Transmission Date: 20050328
  Serious: Yes (Life-Threatening, Hospitalization)
  Sender: FDA-Public Use
  Company Number: 2004116962

PATIENT
  Age: 69 Year
  Sex: Male

DRUGS (7)
  1. CABERGOLINE [Suspect]
     Indication: PARKINSON'S DISEASE
     Dosage: 0.05 MG, ORAL
     Route: 048
     Dates: start: 20040801
  2. DROXIDOPA (DROXIDOPA) [Concomitant]
  3. PAROXETINE HCL [Concomitant]
  4. ZOPICLONE (ZOPICLONE) [Concomitant]
  5. SUCRALFATE [Concomitant]
  6. MAGNESIUM OXIDE (MAGNESIUM OXIDE) [Concomitant]
  7. SODIUM PICOSULFATE (SODIUM PICOSULFATE) [Concomitant]

REACTIONS (4)
  - AGRANULOCYTOSIS [None]
  - BLOOD PRESSURE DECREASED [None]
  - MENTAL DISORDER [None]
  - SEPSIS [None]
